FAERS Safety Report 8025268-4 (Version None)
Quarter: 2012Q1

REPORT INFORMATION
  Report Type: 
  Country: None (occurrence: None)
  Receive Date: 20120105
  Receipt Date: 20120102
  Transmission Date: 20120608
  Serious: No
  Sender: FDA-Public Use
  Company Number: US-PFIZER INC-2012000437

PATIENT
  Sex: Female
  Weight: 48.073 kg

DRUGS (2)
  1. CHILDREN'S ADVIL [Suspect]
     Indication: HEADACHE
     Dosage: UNK
  2. CHILDREN'S ADVIL [Suspect]
     Indication: NASAL CONGESTION

REACTIONS (1)
  - EYE SWELLING [None]
